FAERS Safety Report 25712291 (Version 1)
Quarter: 2025Q3

REPORT INFORMATION
  Report Type: Spontaneous
  Country: US (occurrence: None)
  Receive Date: 20250821
  Receipt Date: 20250821
  Transmission Date: 20251020
  Serious: No
  Sender: Harrow Health
  Company Number: US-HARROW-HAR-2025-US-00645

PATIENT
  Age: 24 Year
  Sex: Male

DRUGS (10)
  1. VERKAZIA [Suspect]
     Active Substance: CYCLOSPORINE
     Indication: Vernal keratoconjunctivitis
     Route: 047
     Dates: start: 2021
  2. Dupixent 300 mg/2 mL injection [Concomitant]
  3. CLARITIN [Concomitant]
     Active Substance: LORATADINE
  4. TACROLIMUS [Concomitant]
     Active Substance: TACROLIMUS
  5. EYSUVIS [Concomitant]
     Active Substance: LOTEPREDNOL ETABONATE
  6. ONDANSETRON [Concomitant]
     Active Substance: ONDANSETRON
  7. SYNTHROID [Concomitant]
     Active Substance: LEVOTHYROXINE SODIUM
  8. VITAMIN D3 [Concomitant]
     Active Substance: CHOLECALCIFEROL
  9. NASONEX [Concomitant]
     Active Substance: MOMETASONE FUROATE
  10. Ayr saline nasal spray [Concomitant]

REACTIONS (8)
  - Therapeutic response decreased [Unknown]
  - Conjunctivitis viral [Not Recovered/Not Resolved]
  - Infectious mononucleosis [Not Recovered/Not Resolved]
  - Nasal congestion [Not Recovered/Not Resolved]
  - Rhinorrhoea [Not Recovered/Not Resolved]
  - Condition aggravated [Unknown]
  - Rash [Not Recovered/Not Resolved]
  - Fatigue [Not Recovered/Not Resolved]

NARRATIVE: CASE EVENT DATE: 20250701
